FAERS Safety Report 14902707 (Version 1)
Quarter: 2018Q2

REPORT INFORMATION
  Report Type: Spontaneous
  Country: US (occurrence: US)
  Receive Date: 20180516
  Receipt Date: 20180516
  Transmission Date: 20180711
  Serious: No
  Sender: FDA-Public Use
  Company Number: US-SA-2017SA089722

PATIENT
  Age: 57 Year
  Sex: Female
  Weight: 122.47 kg

DRUGS (14)
  1. BIOTIN [Concomitant]
     Active Substance: BIOTIN
     Dosage: STRENGTH: 10,000 MCG?DOSING DETAILS: 1 DAILY (UNIST UNKNOWN)
  2. TRAMADOL HYDROCHLORIDE. [Concomitant]
     Active Substance: TRAMADOL HYDROCHLORIDE
     Dosage: DOSING DETAILS (1 EVERY 4 -6 HOURS AS NEEDED) (UNITS UNKNOWN)?STRNGTH: 50 MG
     Route: 065
  3. RELION NOVOLIN R [Concomitant]
     Dosage: DOSE: SLIDING SCALE
     Route: 065
  4. CYCLOBENZAPRINE. [Concomitant]
     Active Substance: CYCLOBENZAPRINE
     Dosage: STRENGTH: 10 MG?DOSING DETAIL: 1 AT BEDTIME (UNITS UNKNOWN)
     Route: 065
  5. LEVOTHYROXINE. [Concomitant]
     Active Substance: LEVOTHYROXINE
     Dosage: DOSING DETAILS: 1 DAILY(UNIT UNKNOWN)?STRENGTH: 125 MCG
     Route: 065
  6. METOPROLOL. [Concomitant]
     Active Substance: METOPROLOL
     Dosage: STRENGTH: 25 MG?DOSING DETAILS: 1/2 AM AND 1/2 PM (UNITS UNKNOWN)
     Route: 065
  7. LANTUS SOLOSTAR [Suspect]
     Active Substance: INSULIN GLARGINE
     Indication: TYPE 2 DIABETES MELLITUS
     Dosage: DOSE:50 UNIT(S)
     Route: 051
     Dates: start: 20170420
  8. HUMULIN N [Concomitant]
     Active Substance: INSULIN HUMAN
     Dosage: DOSE:68 UNIT(S)
  9. LISINOPRIL. [Concomitant]
     Active Substance: LISINOPRIL
     Dosage: DOSING DETAILS: 1 DAILY(UNIT UNKNOWN)?STRENGTH: 10 MG
     Route: 065
  10. SOLOSTAR [Suspect]
     Active Substance: DEVICE
     Indication: TYPE 2 DIABETES MELLITUS
     Dates: start: 20170420
  11. CITALOPRAM [Concomitant]
     Active Substance: CITALOPRAM HYDROBROMIDE
     Dosage: DOSING DETAILS: 1 DAILY(UNIT UNKNOWN)?STRENGTH: 20 MG
     Route: 065
  12. OMEPRAZOLE. [Concomitant]
     Active Substance: OMEPRAZOLE
     Dosage: DOSING DETAILS: 1 DAILY(UNIT UNKNOWN)?STRENGTH: 20 MG
     Route: 065
  13. BABY ASPIRIN [Concomitant]
     Active Substance: ASPIRIN
     Dosage: DOSING DETAILS: 1 AM AND 1 PM (UNITS UNKNOWN)
     Route: 065
  14. PRAVASTATIN. [Concomitant]
     Active Substance: PRAVASTATIN
     Dosage: DOSING DETAILS: 1 AT BEDTIME?STRENGTH: 80 MG
     Route: 065

REACTIONS (4)
  - Blood glucose increased [Unknown]
  - Wrong technique in product usage process [Unknown]
  - Device issue [Unknown]
  - Product use issue [Unknown]

NARRATIVE: CASE EVENT DATE: 2017
